FAERS Safety Report 10787315 (Version 1)
Quarter: 2015Q1

REPORT INFORMATION
  Report Type: Other
  Country: DK (occurrence: DK)
  Receive Date: 20150211
  Receipt Date: 20150211
  Transmission Date: 20150721
  Serious: Yes (Other)
  Sender: FDA-Public Use
  Company Number: DK-MYLANLABS-2015M1002975

PATIENT

DRUGS (1)
  1. ALENDRONAT [Suspect]
     Active Substance: ALENDRONATE SODIUM
     Indication: OSTEOPOROSIS
     Dosage: STYRKE: 70 MG
     Route: 048
     Dates: start: 20110129

REACTIONS (2)
  - Osteonecrosis of jaw [Not Recovered/Not Resolved]
  - Fistula [Unknown]

NARRATIVE: CASE EVENT DATE: 20140715
